FAERS Safety Report 24175468 (Version 1)
Quarter: 2024Q3

REPORT INFORMATION
  Report Type: Spontaneous
  Country: US (occurrence: US)
  Receive Date: 20240805
  Receipt Date: 20240805
  Transmission Date: 20241016
  Serious: No
  Sender: AMPHASTAR
  Company Number: US-Amphastar Pharmaceuticals, Inc.-2160024

PATIENT
  Sex: Female

DRUGS (1)
  1. GANIRELIX ACETATE [Suspect]
     Active Substance: GANIRELIX ACETATE

REACTIONS (1)
  - Injection site pain [Unknown]
